FAERS Safety Report 5175912-4 (Version None)
Quarter: 2006Q4

REPORT INFORMATION
  Report Type: 
  Country: None (occurrence: None)
  Receive Date: 20061215
  Receipt Date: 20061204
  Transmission Date: 20070319
  Serious: Yes (Hospitalization)
  Sender: FDA-Public Use
  Company Number: US-ROCHE-473654

PATIENT
  Sex: Female

DRUGS (2)
  1. NAPROXEN [Suspect]
     Indication: DRUG USE FOR UNKNOWN INDICATION
     Route: 065
  2. NAPROXEN [Suspect]
     Route: 065

REACTIONS (8)
  - DIZZINESS [None]
  - EXTRAVASATION [None]
  - LOSS OF CONSCIOUSNESS [None]
  - MEDIASTINAL HAEMORRHAGE [None]
  - PERICARDIAL HAEMORRHAGE [None]
  - PYREXIA [None]
  - TACHYCARDIA [None]
  - UTERINE LEIOMYOMA [None]
